FAERS Safety Report 6290177-8 (Version None)
Quarter: 2009Q3

REPORT INFORMATION
  Report Type: 
  Country: None (occurrence: None)
  Receive Date: 20090730
  Receipt Date: 20090105
  Transmission Date: 20100115
  Serious: No
  Sender: FDA-Public Use
  Company Number: US-BRISTOL-MYERS SQUIBB COMPANY-14460240

PATIENT
  Age: 76 Year
  Sex: Female
  Weight: 67 kg

DRUGS (3)
  1. COUMADIN [Suspect]
     Indication: THROMBOSIS
  2. PRAVACHOL [Concomitant]
  3. METOPROLOL TARTRATE [Concomitant]

REACTIONS (1)
  - INTERNATIONAL NORMALISED RATIO INCREASED [None]
